FAERS Safety Report 8636897 (Version 3)
Quarter: 2013Q1

REPORT INFORMATION
  Report Type: Report from Study
  Country: US (occurrence: US)
  Receive Date: 20120626
  Receipt Date: 20130103
  Transmission Date: 20140127
  Serious: Yes (Other)
  Sender: FDA-Public Use
  Company Number: US-ROCHE-1078174

PATIENT
  Sex: Female
  Weight: 56.75 kg

DRUGS (6)
  1. TRASTUZUMAB [Suspect]
     Indication: BREAST CANCER METASTATIC
     Route: 042
     Dates: start: 200401, end: 20121219
  2. ZOMETA [Concomitant]
     Indication: BONE LOSS
     Route: 042
     Dates: start: 200312
  3. ZOMETA [Concomitant]
     Route: 065
     Dates: start: 200402, end: 201102
  4. PERCOCET [Concomitant]
     Indication: PAIN
     Route: 048
  5. FEMARA [Concomitant]
     Route: 048
     Dates: start: 2003
  6. SALAGEN [Concomitant]
     Indication: DRY MOUTH
     Route: 048

REACTIONS (9)
  - Mitral valve incompetence [Not Recovered/Not Resolved]
  - Vocal cord paralysis [Not Recovered/Not Resolved]
  - Loose tooth [Not Recovered/Not Resolved]
  - Arthropathy [Not Recovered/Not Resolved]
  - Fatigue [Not Recovered/Not Resolved]
  - Cough [Not Recovered/Not Resolved]
  - Dysphonia [Not Recovered/Not Resolved]
  - Neck pain [Not Recovered/Not Resolved]
  - Diarrhoea [Unknown]
